FAERS Safety Report 5655269-2 (Version None)
Quarter: 2008Q1

REPORT INFORMATION
  Report Type: 
  Country: None (occurrence: None)
  Receive Date: 20080307
  Receipt Date: 20080227
  Transmission Date: 20080703
  Serious: Yes (Hospitalization)
  Sender: FDA-Public Use
  Company Number: B0508814A

PATIENT
  Age: 2 Year
  Sex: Male
  Weight: 14 kg

DRUGS (3)
  1. LAMICTAL [Suspect]
     Route: 048
  2. VALPROATE SODIUM [Concomitant]
     Route: 065
  3. CARBAMAZEPINE [Concomitant]
     Route: 065

REACTIONS (7)
  - DYSGEUSIA [None]
  - FATIGUE [None]
  - MOTOR DYSFUNCTION [None]
  - OVERDOSE [None]
  - PHARMACEUTICAL PRODUCT COMPLAINT [None]
  - PSYCHOMOTOR HYPERACTIVITY [None]
  - SOMNOLENCE [None]
